FAERS Safety Report 12664278 (Version 1)
Quarter: 2016Q3

REPORT INFORMATION
  Report Type: Spontaneous
  Country: KR (occurrence: KR)
  Receive Date: 20160818
  Receipt Date: 20160818
  Transmission Date: 20161109
  Serious: Yes (Other)
  Sender: FDA-Public Use
  Company Number: KR-MYLANLABS-2016M1034569

PATIENT

DRUGS (1)
  1. LORAZEPAM. [Suspect]
     Active Substance: LORAZEPAM
     Indication: SIMPLE PARTIAL SEIZURES
     Dosage: 2 SEPARATE 2MG DOSES
     Route: 042

REACTIONS (3)
  - Simple partial seizures [Recovered/Resolved]
  - Condition aggravated [Recovered/Resolved]
  - Paradoxical drug reaction [Recovered/Resolved]
